FAERS Safety Report 6315360-4 (Version None)
Quarter: 2009Q3

REPORT INFORMATION
  Report Type: 
  Country: None (occurrence: None)
  Receive Date: 20090819
  Receipt Date: 20090814
  Transmission Date: 20100115
  Serious: No
  Sender: FDA-Public Use
  Company Number: US-EISAI INC.-E2020-05068-SPO-US

PATIENT
  Age: 78 Year
  Sex: Male
  Weight: 81.36 kg

DRUGS (6)
  1. ARICEPT [Suspect]
     Route: 048
  2. SYNTHROID [Concomitant]
  3. ENALAPRIL MALEATE [Concomitant]
  4. ASPIRIN [Concomitant]
  5. LASIX [Concomitant]
  6. SINEMET CR [Concomitant]
     Dosage: 25/100

REACTIONS (2)
  - FALL [None]
  - RIB FRACTURE [None]
